FAERS Safety Report 6756902-4 (Version None)
Quarter: 2010Q2

REPORT INFORMATION
  Report Type: 
  Country: None (occurrence: None)
  Receive Date: 20100604
  Receipt Date: 20100524
  Transmission Date: 20101027
  Serious: Yes (Other)
  Sender: FDA-Public Use
  Company Number: JP-PFIZER INC-2010025958

PATIENT
  Age: 65 Year
  Sex: Female
  Weight: 63 kg

DRUGS (11)
  1. GABAPEN [Suspect]
     Dosage: UNK
     Route: 048
     Dates: start: 20080314, end: 20080327
  2. SIGMART [Concomitant]
     Dosage: UNK
  3. OLMETEC [Concomitant]
     Dosage: UNK
  4. FRANDOL [Concomitant]
     Dosage: UNK
  5. ALLEGRA [Concomitant]
     Dosage: UNK
  6. DILTIAZEM HYDROCHLORIDE [Concomitant]
     Dosage: UNK
  7. NITROPEN [Concomitant]
     Dosage: UNK
  8. NORVASC [Concomitant]
     Dosage: UNK
  9. FAMOTIDINE [Concomitant]
     Dosage: UNK
  10. MYSLEE [Concomitant]
     Dosage: UNK
  11. SILECE [Concomitant]
     Dosage: UNK

REACTIONS (1)
  - COGNITIVE DISORDER [None]
